FAERS Safety Report 4687353-4 (Version None)
Quarter: 2005Q2

REPORT INFORMATION
  Report Type: 
  Country: None (occurrence: None)
  Receive Date: 20050608
  Receipt Date: 20050526
  Transmission Date: 20051028
  Serious: Yes (Death, Disabling, Other)
  Sender: FDA-Public Use
  Company Number: 2004031173

PATIENT
  Age: 20 Year
  Sex: Male
  Weight: 85.2762 kg

DRUGS (6)
  1. NEURONTIN [Suspect]
     Indication: ANXIETY
     Dates: start: 20000101, end: 20020401
  2. NEURONTIN [Suspect]
     Indication: BIPOLAR DISORDER
     Dates: start: 20000101, end: 20020401
  3. NEURONTIN [Suspect]
     Indication: DEPRESSION
     Dates: start: 20000101, end: 20020401
  4. GEODON [Suspect]
     Indication: ILL-DEFINED DISORDER
     Dosage: 80 MG (40 MG, 2 IN 1 D)
  5. ACETAMINOPHEN [Suspect]
     Indication: ILL-DEFINED DISORDER
  6. PAXIL [Suspect]
     Indication: ILL-DEFINED DISORDER
     Dosage: 60 MG (30 MG, 2 IN 1 D)

REACTIONS (11)
  - ABNORMAL BEHAVIOUR [None]
  - ANHEDONIA [None]
  - ANXIETY [None]
  - COMPLETED SUICIDE [None]
  - DRUG TOXICITY [None]
  - EMOTIONAL DISORDER [None]
  - INCORRECT DOSE ADMINISTERED [None]
  - INJURY [None]
  - MENTAL DISORDER [None]
  - PAIN [None]
  - PHARMACEUTICAL PRODUCT COMPLAINT [None]
